FAERS Safety Report 21491869 (Version 1)
Quarter: 2022Q4

REPORT INFORMATION
  Report Type: Spontaneous
  Country: US (occurrence: US)
  Receive Date: 20221021
  Receipt Date: 20221021
  Transmission Date: 20230113
  Serious: No
  Sender: FDA-Public Use
  Company Number: US-PERRIGO-22US005557

PATIENT
  Age: 33 Year
  Sex: Female
  Weight: 53.515 kg

DRUGS (11)
  1. LORATADINE [Suspect]
     Active Substance: LORATADINE
     Indication: Perennial allergy
     Dosage: 10 MG, SINGLE
     Route: 048
     Dates: start: 20220409, end: 20220409
  2. LORATADINE [Suspect]
     Active Substance: LORATADINE
     Indication: Rhinorrhoea
     Dosage: 10 MG, BID
     Route: 048
     Dates: start: 20220410, end: 20220412
  3. LORATADINE [Suspect]
     Active Substance: LORATADINE
     Indication: Nasal congestion
  4. LORATADINE [Suspect]
     Active Substance: LORATADINE
     Indication: Pruritus
  5. LORATADINE [Suspect]
     Active Substance: LORATADINE
     Indication: Throat irritation
  6. LORATADINE [Suspect]
     Active Substance: LORATADINE
     Indication: Sneezing
  7. ALBUTEROL SULFATE [Concomitant]
     Active Substance: ALBUTEROL SULFATE
     Indication: Asthma
     Dosage: UNK
     Route: 065
     Dates: start: 2013
  8. CITALOPRAM [Concomitant]
     Active Substance: CITALOPRAM HYDROBROMIDE
     Indication: Depression
     Dosage: UNK
     Route: 065
     Dates: start: 2016
  9. DEPO-PROVERA [Concomitant]
     Active Substance: MEDROXYPROGESTERONE ACETATE
     Indication: Contraception
     Dosage: Q 3 MONTHS
     Route: 065
     Dates: start: 2017
  10. BACLOFEN [Concomitant]
     Active Substance: BACLOFEN
     Indication: Back pain
     Dosage: PRN
     Route: 065
     Dates: start: 2019
  11. BACLOFEN [Concomitant]
     Active Substance: BACLOFEN
     Indication: Muscle spasms

REACTIONS (3)
  - Therapeutic product effect incomplete [Unknown]
  - Inappropriate schedule of product administration [Recovered/Resolved]
  - Off label use [Recovered/Resolved]

NARRATIVE: CASE EVENT DATE: 20220409
